FAERS Safety Report 4622168-4 (Version None)
Quarter: 2005Q1

REPORT INFORMATION
  Report Type: 
  Country: None (occurrence: None)
  Receive Date: 20050329
  Receipt Date: 20050316
  Transmission Date: 20050727
  Serious: Yes (Hospitalization)
  Sender: FDA-Public Use
  Company Number: 2005-00407

PATIENT
  Age: 79 Year
  Sex: Male
  Weight: 96.1 kg

DRUGS (9)
  1. VELCADE [Suspect]
     Indication: MULTIPLE MYELOMA
     Dosage: 1.30 MG/M2, INTRAVENOUS
     Route: 042
     Dates: start: 20041213, end: 20050201
  2. AMOXICILLIN [Concomitant]
  3. ATENOLOL [Concomitant]
  4. POTASSIJM (POTASSIUM) [Concomitant]
  5. GLIPIZIDE [Concomitant]
  6. SIMVASTTIN (SIMVASTATIN) [Concomitant]
  7. ANTIEMETICS AND ANTINAUSEANTS [Concomitant]
  8. ACETYLSALICYLIC ACID SRT [Concomitant]
  9. MULTIVITAMINS (ERGOCALCIFEROL, ASCORBIC ACID, PANTHENOL, NICOTINAMIDE, [Concomitant]

REACTIONS (14)
  - BLOOD CREATINE INCREASED [None]
  - CONSTIPATION [None]
  - DECREASED APPETITE [None]
  - DIARRHOEA [None]
  - IMMUNODEFICIENCY [None]
  - INFLUENZA LIKE ILLNESS [None]
  - MUCOSAL INFLAMMATION [None]
  - NAUSEA [None]
  - ORAL INTAKE REDUCED [None]
  - PANCYTOPENIA [None]
  - PRODUCTIVE COUGH [None]
  - STAPHYLOCOCCAL INFECTION [None]
  - VOMITING [None]
  - WEIGHT DECREASED [None]
